FAERS Safety Report 18961162 (Version 1)
Quarter: 2021Q1

REPORT INFORMATION
  Report Type: Spontaneous
  Country: US (occurrence: US)
  Receive Date: 20210302
  Receipt Date: 20210302
  Transmission Date: 20210420
  Serious: Yes (Other)
  Sender: FDA-Public Use
  Company Number: US-PFIZER INC-2021206335

PATIENT
  Age: 45 Year
  Sex: Female

DRUGS (1)
  1. XELJANZ XR [Suspect]
     Active Substance: TOFACITINIB CITRATE
     Dosage: 11 MG
     Dates: start: 20200501

REACTIONS (9)
  - Arthralgia [Unknown]
  - Urinary tract infection [Unknown]
  - Pain [Unknown]
  - Pneumonia [Unknown]
  - Alopecia [Unknown]
  - Skin abrasion [Unknown]
  - Headache [Unknown]
  - Skin odour abnormal [Unknown]
  - Impaired healing [Unknown]

NARRATIVE: CASE EVENT DATE: 202101
